FAERS Safety Report 8464290-0 (Version None)
Quarter: 2012Q2

REPORT INFORMATION
  Report Type: 
  Country: None (occurrence: None)
  Receive Date: 20120625
  Receipt Date: 20120615
  Transmission Date: 20120825
  Serious: Yes (Death, Other)
  Sender: FDA-Public Use
  Company Number: US-BAXTER-2010BH001154

PATIENT
  Sex: Female
  Weight: 90.6 kg

DRUGS (30)
  1. HEPARIN SODIUM 25,000 UNITS IN DEXTROSE 5% [Suspect]
     Route: 041
     Dates: start: 20080301, end: 20080305
  2. HEPARIN SODIUM [Suspect]
     Route: 042
     Dates: start: 20080303, end: 20080303
  3. HEPARIN SODIUM [Suspect]
     Route: 042
     Dates: start: 20080825, end: 20081231
  4. RENAGEL [Concomitant]
     Route: 065
  5. METOPROLOL [Concomitant]
     Route: 042
  6. HEPARIN SODIUM [Suspect]
     Route: 042
     Dates: start: 20080609, end: 20080822
  7. HEPARIN SODIUM [Suspect]
     Route: 042
     Dates: start: 20071002, end: 20071002
  8. HEPARIN SODIUM [Suspect]
     Route: 042
     Dates: start: 20071004, end: 20071004
  9. HEPARIN SODIUM [Suspect]
     Route: 042
     Dates: start: 20071208, end: 20071208
  10. HEPARIN SODIUM [Suspect]
     Route: 042
     Dates: start: 20080117, end: 20080229
  11. HEPARIN SODIUM [Suspect]
     Route: 042
     Dates: start: 20090109, end: 20090223
  12. TOPROL-XL [Concomitant]
     Route: 065
  13. ASPIRIN [Concomitant]
     Route: 065
  14. RENAGEL [Concomitant]
     Route: 065
  15. HEPARIN SODIUM [Suspect]
     Route: 042
     Dates: start: 20080502, end: 20080502
  16. HEPARIN SODIUM [Suspect]
     Route: 042
     Dates: start: 20080505, end: 20080604
  17. HEPARIN SODIUM [Suspect]
     Route: 042
     Dates: start: 20071204, end: 20071204
  18. HEPARIN SODIUM [Suspect]
     Route: 042
     Dates: start: 20080307, end: 20080430
  19. HEPARIN SODIUM [Suspect]
     Route: 042
     Dates: start: 20080606, end: 20080606
  20. HEPARIN SODIUM [Suspect]
     Route: 042
     Dates: start: 20071006, end: 20071201
  21. DAILY MULTIVITAMIN [Concomitant]
     Route: 065
  22. HEPARIN SODIUM [Suspect]
     Route: 065
  23. HEPARIN SODIUM 25,000 UNITS IN DEXTROSE 5% [Suspect]
     Route: 041
     Dates: start: 20090225, end: 20090228
  24. HEPARIN SODIUM [Suspect]
     Route: 042
     Dates: start: 20071206, end: 20071206
  25. HEPARIN SODIUM 25,000 UNITS IN DEXTROSE 5% [Suspect]
     Route: 041
     Dates: start: 20090302, end: 20090303
  26. HEPARIN SODIUM [Suspect]
     Route: 010
  27. HEPARIN SODIUM [Suspect]
     Route: 042
     Dates: start: 20080101, end: 20080112
  28. DARBEPOETIN ALFA [Concomitant]
     Route: 065
  29. LIPITOR [Concomitant]
     Route: 065
  30. CANDESARTAN [Concomitant]
     Route: 065

REACTIONS (20)
  - PULMONARY ALVEOLAR HAEMORRHAGE [None]
  - BLOOD PRESSURE DECREASED [None]
  - ARTERIOVENOUS FISTULA SITE HAEMORRHAGE [None]
  - ANEURYSM [None]
  - NAUSEA [None]
  - FATIGUE [None]
  - CARDIOPULMONARY FAILURE [None]
  - HEPARIN-INDUCED THROMBOCYTOPENIA [None]
  - ARRHYTHMIA [None]
  - VOMITING [None]
  - GRAFT INFECTION [None]
  - ABDOMINAL PAIN [None]
  - RESPIRATORY DISTRESS [None]
  - HEADACHE [None]
  - MUSCLE SPASMS [None]
  - ARTERIAL RUPTURE [None]
  - ERYTHEMA [None]
  - STAPHYLOCOCCAL INFECTION [None]
  - MALAISE [None]
  - ACUTE MYOCARDIAL INFARCTION [None]
